FAERS Safety Report 24439306 (Version 10)
Quarter: 2025Q4

REPORT INFORMATION
  Report Type: Spontaneous
  Country: US (occurrence: US)
  Receive Date: 20241015
  Receipt Date: 20251016
  Transmission Date: 20260118
  Serious: Yes (Hospitalization)
  Sender: ROCHE
  Company Number: US-ROCHE-10000105783

PATIENT
  Age: 1 Year
  Sex: Male
  Weight: 10.89 kg

DRUGS (4)
  1. HEMLIBRA [Suspect]
     Active Substance: EMICIZUMAB-KXWH
     Indication: Factor VIII deficiency
     Dosage: STRENGTH: 30MG/ML
     Route: 058
     Dates: start: 202409
  2. HEMLIBRA [Suspect]
     Active Substance: EMICIZUMAB-KXWH
     Dosage: STRENGTH: 30MG/ML
     Route: 058
     Dates: start: 20241217
  3. HEMLIBRA [Suspect]
     Active Substance: EMICIZUMAB-KXWH
     Dosage: STRENGTH: 30 MG/ML AND 12MG/0.4ML
     Route: 058
     Dates: start: 20240918
  4. HEMLIBRA [Suspect]
     Active Substance: EMICIZUMAB-KXWH
     Dosage: STRENGTH: 12MG/0.4ML
     Route: 058
     Dates: start: 202409

REACTIONS (14)
  - Contusion [Unknown]
  - Haemorrhage [Recovered/Resolved]
  - Injury [Unknown]
  - Tongue haemorrhage [Unknown]
  - Haemarthrosis [Unknown]
  - Haemorrhage [Not Recovered/Not Resolved]
  - Eye haemorrhage [Not Recovered/Not Resolved]
  - Swelling [Unknown]
  - Haemorrhage [Recovered/Resolved]
  - Haemorrhage [Unknown]
  - Haemorrhage [Unknown]
  - Genital swelling [Unknown]
  - Haemorrhage [Unknown]
  - Wrong technique in product usage process [Unknown]

NARRATIVE: CASE EVENT DATE: 20250313
